FAERS Safety Report 6087104-5 (Version None)
Quarter: 2009Q1

REPORT INFORMATION
  Report Type: 
  Country: None (occurrence: None)
  Receive Date: 20090223
  Receipt Date: 20090216
  Transmission Date: 20090719
  Serious: Yes (Other)
  Sender: FDA-Public Use
  Company Number: US-ELI_LILLY_AND_COMPANY-US200710005015

PATIENT
  Sex: Female
  Weight: 75.283 kg

DRUGS (11)
  1. BYETTA [Suspect]
     Dosage: 5 UG, 2/D
     Route: 058
     Dates: start: 20060825, end: 20060929
  2. BYETTA [Suspect]
     Dosage: 10 UG, 2/D
     Route: 058
     Dates: start: 20060929, end: 20071116
  3. BYETTA [Suspect]
     Dosage: 10 UG, 2/D
     Route: 058
     Dates: start: 20080701, end: 20081001
  4. BYETTA [Suspect]
     Dosage: 10 UG, 2/D
     Route: 058
     Dates: start: 20090101
  5. METFORMIN [Concomitant]
     Indication: DIABETES MELLITUS
     Dosage: 500 MG, UNKNOWN
     Route: 065
  6. METFORMIN [Concomitant]
     Dosage: 1000 MG, DAILY (1/D)
  7. NEURONTIN [Concomitant]
     Dosage: 600 MG, EACH EVENING
     Route: 065
  8. VYTORIN [Concomitant]
     Dosage: UNK, DAILY (1/D)
     Route: 048
  9. ASPIRIN [Concomitant]
     Indication: MUSCULOSKELETAL PAIN
     Dosage: 1000 MG, DAILY (1/D)
     Route: 065
  10. CENESTIN [Concomitant]
     Dosage: 0.45 MG, DAILY (1/D)
     Route: 048
  11. XANAX [Concomitant]
     Dosage: 0.5 MG, UNKNOWN
     Route: 065

REACTIONS (3)
  - DECREASED APPETITE [None]
  - PANCREATITIS [None]
  - WEIGHT DECREASED [None]
